FAERS Safety Report 12294931 (Version 1)
Quarter: 2016Q2

REPORT INFORMATION
  Report Type: Spontaneous
  Country: US (occurrence: None)
  Receive Date: 20160421
  Receipt Date: 20160421
  Transmission Date: 20160815
  Serious: Yes (Life-Threatening)
  Sender: FDA-Public Use
  Company Number: None

PATIENT
  Age: 4 Year
  Sex: Female
  Weight: 15.6 kg

DRUGS (5)
  1. SEVOFLURANE. [Suspect]
     Active Substance: SEVOFLURANE
     Indication: GENERAL ANAESTHESIA
     Dosage: SEVOFLURANE 1.3% ET CONTINUOUS INHALATION
     Route: 055
     Dates: start: 20160407
  2. KATOROLAC [Concomitant]
  3. ODANSETRON [Concomitant]
     Active Substance: ONDANSETRON
  4. PROPOFOL. [Concomitant]
     Active Substance: PROPOFOL
  5. DECADRON [Concomitant]
     Active Substance: DEXAMETHASONE

REACTIONS (4)
  - End-tidal CO2 decreased [None]
  - Oxygen saturation decreased [None]
  - Heart rate increased [None]
  - Blood pressure decreased [None]

NARRATIVE: CASE EVENT DATE: 20160407
